FAERS Safety Report 6136198-7 (Version None)
Quarter: 2009Q1

REPORT INFORMATION
  Report Type: 
  Country: None (occurrence: None)
  Receive Date: 20090330
  Receipt Date: 20090227
  Transmission Date: 20090719
  Serious: No
  Sender: FDA-Public Use
  Company Number: US-BAYER-200914751NA

PATIENT
  Age: 18 Year
  Sex: Male
  Weight: 67 kg

DRUGS (1)
  1. YASMIN [Suspect]
     Indication: ACNE
     Dates: start: 20080822

REACTIONS (2)
  - BREAST TENDERNESS [None]
  - GYNAECOMASTIA [None]
